FAERS Safety Report 6269189-6 (Version None)
Quarter: 2009Q3

REPORT INFORMATION
  Report Type: 
  Country: None (occurrence: None)
  Receive Date: 20090715
  Receipt Date: 20090709
  Transmission Date: 20100115
  Serious: Yes (Hospitalization)
  Sender: FDA-Public Use
  Company Number: FR-JNJFOC-20081001139

PATIENT
  Sex: Female
  Weight: 78 kg

DRUGS (6)
  1. PALIPERIDONE [Suspect]
     Route: 048
  2. PALIPERIDONE [Suspect]
     Route: 048
  3. PALIPERIDONE [Suspect]
     Indication: SCHIZOPHRENIA
     Route: 048
  4. SERTRALINE [Concomitant]
     Indication: DEPRESSION
     Route: 048
  5. PRAZEPAM [Concomitant]
     Indication: ANXIETY
     Route: 048
  6. CHLORMADINONE ACETATE TAB [Concomitant]
     Indication: CONTRACEPTION
     Route: 048

REACTIONS (3)
  - ANXIETY [None]
  - DRUG INEFFECTIVE [None]
  - JEALOUS DELUSION [None]
